FAERS Safety Report 4528741-6 (Version None)
Quarter: 2004Q4

REPORT INFORMATION
  Report Type: 
  Country: None (occurrence: None)
  Receive Date: 20041216
  Receipt Date: 20031006
  Transmission Date: 20050328
  Serious: Yes (Hospitalization)
  Sender: FDA-Public Use
  Company Number: DE-ROCHE-348565

PATIENT
  Age: 51 Year
  Sex: Male
  Weight: 97 kg

DRUGS (6)
  1. ROFERON-A [Suspect]
     Route: 058
     Dates: start: 20010615
  2. INSULIN [Concomitant]
     Dates: start: 19940615
  3. COVERSUM [Concomitant]
     Indication: HYPERTENSION
     Route: 048
     Dates: start: 20010615
  4. NORVASC [Concomitant]
     Indication: HYPERTENSION
     Route: 048
     Dates: start: 20010615
  5. CYNT [Concomitant]
     Route: 048
     Dates: start: 20010615
  6. GLUCOBAY [Concomitant]
     Dates: start: 20010615

REACTIONS (2)
  - FALL [None]
  - TENDON RUPTURE [None]
